FAERS Safety Report 15462803 (Version 1)
Quarter: 2018Q4

REPORT INFORMATION
  Report Type: Spontaneous
  Country: US (occurrence: US)
  Receive Date: 20181004
  Receipt Date: 20181004
  Transmission Date: 20190204
  Serious: Yes (Hospitalization, Other)
  Sender: FDA-Public Use
  Company Number: US-TEVA-2018-US-959896

PATIENT
  Age: 39 Year
  Sex: Female

DRUGS (1)
  1. COPAXONE [Suspect]
     Active Substance: GLATIRAMER ACETATE
     Indication: MULTIPLE SCLEROSIS
     Route: 058
     Dates: start: 20160519, end: 20180817

REACTIONS (9)
  - Multiple sclerosis [Unknown]
  - Wheelchair user [Unknown]
  - Gait disturbance [Unknown]
  - Walking aid user [Unknown]
  - Incontinence [Unknown]
  - Pain in extremity [Unknown]
  - Fall [Unknown]
  - Mobility decreased [Unknown]
  - Fatigue [Unknown]

NARRATIVE: CASE EVENT DATE: 20180903
